FAERS Safety Report 16170190 (Version 3)
Quarter: 2019Q2

REPORT INFORMATION
  Report Type: Spontaneous
  Country: AU (occurrence: AU)
  Receive Date: 20190408
  Receipt Date: 20190408
  Transmission Date: 20190711
  Serious: Yes (Life-Threatening, Hospitalization, Other)
  Sender: FDA-Public Use
  Company Number: PHHY2019AU078850

PATIENT
  Age: 70 Year
  Sex: Female

DRUGS (4)
  1. HYDROXYCHLOROQUINE [Suspect]
     Active Substance: HYDROXYCHLOROQUINE
     Indication: PRODUCT USED FOR UNKNOWN INDICATION
     Dosage: 200 MG, QD
     Route: 065
  2. METHOTREXATE. [Suspect]
     Active Substance: METHOTREXATE
     Indication: PSORIATIC ARTHROPATHY
     Dosage: 10 MG, Q2W
     Route: 048
  3. PREDNISOLONE. [Suspect]
     Active Substance: PREDNISOLONE
     Indication: PSORIATIC ARTHROPATHY
     Dosage: 8 MG, QD
     Route: 065
  4. RIVAROXABAN [Concomitant]
     Active Substance: RIVAROXABAN
     Indication: ATRIAL FIBRILLATION
     Dosage: 20 MG, QD
     Route: 065

REACTIONS (10)
  - Bone abscess [Recovering/Resolving]
  - Mycobacterium avium complex infection [Recovering/Resolving]
  - Bacterial infection [Recovering/Resolving]
  - Peptostreptococcus infection [Recovering/Resolving]
  - Cachexia [Recovering/Resolving]
  - Calcinosis [Recovering/Resolving]
  - Enterobacter infection [Recovering/Resolving]
  - Sepsis [Recovering/Resolving]
  - Delirium [Recovering/Resolving]
  - Dermal sinus [Unknown]
